FAERS Safety Report 9033324 (Version 2)
Quarter: 2013Q2

REPORT INFORMATION
  Report Type: Spontaneous
  Country: DK (occurrence: CA)
  Receive Date: 20130128
  Receipt Date: 20130523
  Transmission Date: 20140414
  Serious: Yes (Hospitalization, Other)
  Sender: FDA-Public Use
  Company Number: CA-FRI-1000042165

PATIENT
  Age: 1 Day
  Sex: Male

DRUGS (1)
  1. ESCITALOPRAM [Suspect]
     Indication: DEPRESSION
     Route: 064

REACTIONS (3)
  - Hypotonia [Unknown]
  - Respiratory depression [Unknown]
  - Foetal exposure during pregnancy [Unknown]
